FAERS Safety Report 6781827-8 (Version None)
Quarter: 2010Q2

REPORT INFORMATION
  Report Type: 
  Country: None (occurrence: None)
  Receive Date: 20100621
  Receipt Date: 20100608
  Transmission Date: 20101027
  Serious: Yes (Other)
  Sender: FDA-Public Use
  Company Number: PHHY2010DK37789

PATIENT
  Sex: Male
  Weight: 58 kg

DRUGS (3)
  1. DICLOFENAC SODIUM [Suspect]
     Indication: ARTHRITIS
     Dosage: 75 MG, BID
     Route: 048
     Dates: start: 20050501, end: 20100604
  2. DICLOFENAC SODIUM [Suspect]
     Dosage: UNK
     Route: 048
     Dates: end: 20100604
  3. WARFARIN SODIUM [Concomitant]
     Dosage: UNK

REACTIONS (4)
  - EYELID PTOSIS [None]
  - MIGRAINE WITH AURA [None]
  - PUPILS UNEQUAL [None]
  - VISUAL IMPAIRMENT [None]
